FAERS Safety Report 24199881 (Version 1)
Quarter: 2024Q3

REPORT INFORMATION
  Report Type: 
  Country: US (occurrence: US)
  Receive Date: 20240812
  Receipt Date: 20240812
  Transmission Date: 20241017
  Serious: No
  Sender: ASTELLAS
  Company Number: US-ASTELLAS-2024US022517

PATIENT

DRUGS (5)
  1. AVACINCAPTAD PEGOL [Suspect]
     Active Substance: AVACINCAPTAD PEGOL
     Indication: Product used for unknown indication
     Dosage: 1 VIAL, MONTHLY (Q28 DAYS)
     Route: 050
  2. AVACINCAPTAD PEGOL [Suspect]
     Active Substance: AVACINCAPTAD PEGOL
     Indication: Product used for unknown indication
     Dosage: 1 VIAL, MONTHLY (Q28 DAYS)
     Route: 050
  3. AVACINCAPTAD PEGOL [Suspect]
     Active Substance: AVACINCAPTAD PEGOL
     Indication: Product used for unknown indication
     Dosage: 1 VIAL, MONTHLY (Q28 DAYS)
     Route: 050
  4. AVACINCAPTAD PEGOL [Suspect]
     Active Substance: AVACINCAPTAD PEGOL
     Indication: Product used for unknown indication
     Dosage: 1 VIAL, MONTHLY (Q28 DAYS)
     Route: 050
  5. AVACINCAPTAD PEGOL [Suspect]
     Active Substance: AVACINCAPTAD PEGOL
     Indication: Product used for unknown indication
     Dosage: 1 VIAL, MONTHLY (Q28 DAYS)
     Route: 050

REACTIONS (2)
  - No adverse event [Unknown]
  - Needle issue [Unknown]
